FAERS Safety Report 16399294 (Version 1)
Quarter: 2019Q2

REPORT INFORMATION
  Report Type: Spontaneous
  Country: US (occurrence: US)
  Receive Date: 20190501
  Receipt Date: 20190501
  Transmission Date: 20190711
  Serious: Yes (Other)
  Sender: FDA-Public Use
  Company Number: None

PATIENT

DRUGS (2)
  1. PROPRANOLOL 8MG [Suspect]
     Active Substance: PROPRANOLOL HYDROCHLORIDE
  2. LOSARTAN POTASSIUM, 100MG [Suspect]
     Active Substance: LOSARTAN POTASSIUM
     Indication: HYPERTENSION

REACTIONS (2)
  - Gastrooesophageal reflux disease [None]
  - Abdominal discomfort [None]

NARRATIVE: CASE EVENT DATE: 2018
